FAERS Safety Report 23998718 (Version 1)
Quarter: 2024Q2

REPORT INFORMATION
  Report Type: Spontaneous
  Country: JP (occurrence: JP)
  Receive Date: 20240621
  Receipt Date: 20240621
  Transmission Date: 20240716
  Serious: Yes (Other)
  Sender: FDA-Public Use
  Company Number: JP-VIATRISJAPAN-2024M1053987AA

PATIENT
  Age: 95 Year
  Sex: Male

DRUGS (3)
  1. PREGABALIN [Suspect]
     Active Substance: PREGABALIN
     Indication: Neuropathic pruritus
     Dosage: DAYX+2 TO DAYX+7
     Route: 048
  2. PREGABALIN [Suspect]
     Active Substance: PREGABALIN
     Dosage: DAYX+8 TO DAYX+14
     Route: 048
  3. ACYCLOVIR [Suspect]
     Active Substance: ACYCLOVIR
     Indication: Herpes zoster disseminated
     Dosage: UNK
     Route: 065

REACTIONS (2)
  - Urinary retention [Recovering/Resolving]
  - Off label use [Unknown]
